FAERS Safety Report 10833446 (Version 1)
Quarter: 2015Q1

REPORT INFORMATION
  Report Type: Spontaneous
  Country: FR (occurrence: FR)
  Receive Date: 20150219
  Receipt Date: 20150219
  Transmission Date: 20150721
  Serious: Yes (Other)
  Sender: FDA-Public Use
  Company Number: FR-MALLINCKRODT-T201501208

PATIENT
  Age: 6 Year
  Sex: Female
  Weight: 30 kg

DRUGS (1)
  1. OPTIJECT [Suspect]
     Active Substance: IOVERSOL
     Indication: COMPUTERISED TOMOGRAM HEAD
     Dosage: 125 ML, SINGLE
     Route: 042
     Dates: start: 20150116, end: 20150116

REACTIONS (4)
  - Prescribed overdose [Recovered/Resolved]
  - Dyspnoea [Recovered/Resolved]
  - Vomiting [Recovered/Resolved]
  - Feeling hot [Recovered/Resolved]

NARRATIVE: CASE EVENT DATE: 20150116
